FAERS Safety Report 5678240-3 (Version None)
Quarter: 2008Q1

REPORT INFORMATION
  Report Type: 
  Country: None (occurrence: None)
  Receive Date: 20080324
  Receipt Date: 20080324
  Transmission Date: 20080703
  Serious: Yes (Hospitalization)
  Sender: FDA-Public Use
  Company Number: None

PATIENT
  Age: 75 Year
  Sex: Male
  Weight: 80.2 kg

DRUGS (2)
  1. INSULIN [Suspect]
     Indication: DIABETES MELLITUS
     Dosage: 30UNITS EVERY DAY SQ
     Route: 058
     Dates: start: 20050622
  2. LISINOPRIL [Suspect]
     Indication: HYPERTENSION
     Dosage: 10MG  EVERY DAY  PO
     Route: 048
     Dates: start: 20040706

REACTIONS (2)
  - HYPOGLYCAEMIA [None]
  - HYPOTENSION [None]
